FAERS Safety Report 12835165 (Version 3)
Quarter: 2017Q1

REPORT INFORMATION
  Report Type: Spontaneous
  Country: GB (occurrence: GB)
  Receive Date: 20161011
  Receipt Date: 20170301
  Transmission Date: 20170428
  Serious: Yes (Death, Hospitalization)
  Sender: FDA-Public Use
  Company Number: GB-BEH-2016073395

PATIENT
  Age: 83 Year
  Sex: Female
  Weight: 51 kg

DRUGS (18)
  1. LEVOTHYROXINE SODIUM. [Concomitant]
     Active Substance: LEVOTHYROXINE SODIUM
     Dosage: 100 ?G, OD (MORNING)
     Route: 048
  2. ASPIRIN. [Concomitant]
     Active Substance: ASPIRIN
     Dosage: 75 MG, OD (MORNING)
     Route: 048
  3. NICORANDIL [Concomitant]
     Active Substance: NICORANDIL
     Dosage: 20 MG, UNK
     Route: 065
     Dates: end: 201609
  4. AMOXICILLIN. [Concomitant]
     Active Substance: AMOXICILLIN
     Dosage: 500 MG, TID
     Route: 048
  5. LEVOTHYROXINE SODIUM. [Concomitant]
     Active Substance: LEVOTHYROXINE SODIUM
     Dosage: 50 ?G, OD (MORNING)
     Route: 048
  6. MONOMIL [Concomitant]
     Dosage: 60 MG, UNK
     Route: 065
  7. LANSOPRAZOLE. [Concomitant]
     Active Substance: LANSOPRAZOLE
     Dosage: UNK
     Route: 065
     Dates: end: 201609
  8. FLUOXETINE [Concomitant]
     Active Substance: FLUOXETINE HYDROCHLORIDE
     Dosage: 20 MG, UNK
     Route: 065
     Dates: end: 201609
  9. MEMANTINE. [Concomitant]
     Active Substance: MEMANTINE
     Dosage: 20 MG, OD (MORNING)
     Route: 048
  10. DONEPEZIL. [Concomitant]
     Active Substance: DONEPEZIL
     Indication: DEMENTIA
     Dosage: 5 MG, OD (MORNING)
     Route: 048
  11. ACICLOVIR [Concomitant]
     Active Substance: ACYCLOVIR
     Dosage: 400 MG, BID
     Route: 048
  12. GTN [Concomitant]
     Active Substance: NITROGLYCERIN
     Dosage: 2 SPRAYS, PRN (AS REQUIRED)
     Route: 060
  13. CLARITHROMYCIN. [Concomitant]
     Active Substance: CLARITHROMYCIN
     Indication: INFECTION
     Dosage: 250 MG, UNK
     Route: 065
  14. CANDESARTAN [Concomitant]
     Active Substance: CANDESARTAN
     Dosage: 2 MG, OD
     Route: 065
  15. PRIVIGEN [Suspect]
     Active Substance: HUMAN IMMUNOGLOBULIN G
     Indication: PRODUCT USED FOR UNKNOWN INDICATION
     Dosage: 20 G, UNK
     Route: 042
     Dates: start: 20160814
  16. TILDIEM [Concomitant]
     Active Substance: DILTIAZEM HYDROCHLORIDE
     Dosage: 120 MG, UNK
     Route: 065
     Dates: end: 201609
  17. ISOSORBIDE MONONITRATE. [Concomitant]
     Active Substance: ISOSORBIDE MONONITRATE
     Dosage: 30 MG, OD (MORNING)
     Route: 048
  18. PARACETAMOL [Suspect]
     Active Substance: ACETAMINOPHEN
     Dosage: 1 G, UNKEVERY 4-6 HOURS AS REQUIRED
     Route: 048

REACTIONS (11)
  - Troponin increased [Fatal]
  - Left ventricular dysfunction [Fatal]
  - Oedema [Unknown]
  - Cardiac failure [Unknown]
  - Acute coronary syndrome [Fatal]
  - White blood cell count increased [Fatal]
  - Hyponatraemia [Unknown]
  - Acute myocardial infarction [Fatal]
  - Chest pain [Fatal]
  - Musculoskeletal pain [Unknown]
  - Bundle branch block right [Unknown]

NARRATIVE: CASE EVENT DATE: 201609
